FAERS Safety Report 6637935-5 (Version None)
Quarter: 2010Q1

REPORT INFORMATION
  Report Type: 
  Country: None (occurrence: None)
  Receive Date: 20100317
  Receipt Date: 20100308
  Transmission Date: 20100710
  Serious: Yes (Other)
  Sender: FDA-Public Use
  Company Number: PHHY2010US14349

PATIENT
  Sex: Female

DRUGS (3)
  1. TEKTURNA [Suspect]
     Dosage: UNK
     Route: 065
  2. OTHER HYPNOTICS AND SEDATIVES [Concomitant]
     Route: 065
  3. ANTI-ASTHMATICS [Concomitant]
     Route: 065

REACTIONS (4)
  - FEELING ABNORMAL [None]
  - HALLUCINATION [None]
  - SLEEP DISORDER [None]
  - SOMNOLENCE [None]
